FAERS Safety Report 6828791-0 (Version None)
Quarter: 2010Q3

REPORT INFORMATION
  Report Type: 
  Country: None (occurrence: None)
  Receive Date: 20100709
  Receipt Date: 20070220
  Transmission Date: 20110219
  Serious: No
  Sender: FDA-Public Use
  Company Number: US-PFIZER INC-2007014120

PATIENT
  Age: 47 Year
  Sex: Female
  Weight: 63.5 kg

DRUGS (9)
  1. CHANTIX [Suspect]
     Indication: SMOKING CESSATION THERAPY
     Route: 048
     Dates: start: 20070208
  2. CELEXA [Concomitant]
     Route: 048
  3. WELLBUTRIN [Concomitant]
     Route: 048
  4. SERZONE [Concomitant]
     Route: 048
  5. MONTELUKAST SODIUM [Concomitant]
     Route: 048
  6. NASACORT [Concomitant]
  7. ADVAIR DISKUS 100/50 [Concomitant]
  8. XANAX [Concomitant]
  9. ALBUTEROL [Concomitant]
     Route: 055

REACTIONS (3)
  - INSOMNIA [None]
  - NAUSEA [None]
  - VOMITING [None]
